FAERS Safety Report 10203798 (Version 1)
Quarter: 2014Q2

REPORT INFORMATION
  Report Type: Spontaneous
  Country: MY (occurrence: MY)
  Receive Date: 20140529
  Receipt Date: 20140529
  Transmission Date: 20141212
  Serious: Yes (Other)
  Sender: FDA-Public Use
  Company Number: MY-EISAI INC-E3810-07131-SPO-MY

PATIENT
  Age: 37 Year
  Sex: Female

DRUGS (3)
  1. PARIET [Suspect]
     Indication: HELICOBACTER INFECTION
     Route: 048
     Dates: start: 20130418
  2. CLARITHROMYCIN [Concomitant]
  3. AMOXYCILIN [Concomitant]

REACTIONS (1)
  - Dyspnoea [Unknown]
